FAERS Safety Report 4677510-5 (Version None)
Quarter: 2005Q2

REPORT INFORMATION
  Report Type: 
  Country: None (occurrence: None)
  Receive Date: 20050526
  Receipt Date: 20050526
  Transmission Date: 20051028
  Serious: Yes (Other)
  Sender: FDA-Public Use
  Company Number: None

PATIENT
  Age: 14 Year
  Sex: Female
  Weight: 34.0198 kg

DRUGS (1)
  1. SERTRALINE HCL [Suspect]
     Indication: DEPRESSION
     Dosage: 100 MG EACH MORNING  ORALLY
     Route: 048
     Dates: start: 20041230, end: 20050215

REACTIONS (5)
  - ANXIETY [None]
  - CONDITION AGGRAVATED [None]
  - DEPRESSION [None]
  - DRUG INEFFECTIVE [None]
  - PHARMACEUTICAL PRODUCT COMPLAINT [None]
